FAERS Safety Report 8888970 (Version 1)
Quarter: 2012Q4

REPORT INFORMATION
  Report Type: 
  Country: US (occurrence: US)
  Receive Date: 20121106
  Receipt Date: 20121106
  Transmission Date: 20130627
  Serious: Yes (Other)
  Sender: FDA-Public Use
  Company Number: PHEH2012US021582

PATIENT
  Sex: Male

DRUGS (9)
  1. TEKTURNA [Suspect]
  2. EXFORGE [Suspect]
     Indication: HYPERTENSION
     Dosage: 1 DF (320/10 mg), Daily
     Route: 048
  3. NORVASC [Suspect]
  4. METOPROLOL [Concomitant]
  5. DIGOXIN [Concomitant]
  6. ATORVASTATIN [Concomitant]
  7. METFORMIN [Concomitant]
  8. ASPIRIN [Concomitant]
  9. VITAMIN D3 [Concomitant]

REACTIONS (3)
  - Type 2 diabetes mellitus [Unknown]
  - Weight decreased [Unknown]
  - Blood pressure decreased [Unknown]
